FAERS Safety Report 4711507-1 (Version None)
Quarter: 2005Q3

REPORT INFORMATION
  Report Type: 
  Country: None (occurrence: None)
  Receive Date: 20050711
  Receipt Date: 20050711
  Transmission Date: 20060218
  Serious: Yes (Other)
  Sender: FDA-Public Use
  Company Number: None

PATIENT
  Sex: Female

DRUGS (7)
  1. PARAPLATIN [Suspect]
     Indication: BREAST CANCER
     Dosage: IV INFUSION I NTRAVENOU
     Route: 042
     Dates: start: 20050701, end: 20050701
  2. KYTRIL [Concomitant]
  3. HERCEPTIN [Concomitant]
  4. BENADRYL [Concomitant]
  5. CIMETIDINE [Concomitant]
  6. TAXOL [Concomitant]
  7. DECADRON [Concomitant]

REACTIONS (6)
  - ABDOMINAL PAIN [None]
  - DEFAECATION URGENCY [None]
  - FLUSHING [None]
  - NAUSEA [None]
  - PRURITUS [None]
  - UPPER RESPIRATORY TRACT CONGESTION [None]
